FAERS Safety Report 7963385-5 (Version None)
Quarter: 2011Q4

REPORT INFORMATION
  Report Type: 
  Country: None (occurrence: None)
  Receive Date: 20111205
  Receipt Date: 20111122
  Transmission Date: 20120403
  Serious: Yes (Death)
  Sender: FDA-Public Use
  Company Number: ADR-2011-11649

PATIENT
  Age: 53 Year
  Sex: Female

DRUGS (2)
  1. DILAUDID 7 MG/ML; BUPIVACAINE 30 MG/ML; CLONIDINE 500 MCG/ML [Concomitant]
  2. BACLOFEN [Suspect]
     Dosage: 393.01 MCG/DAY
     Route: 037

REACTIONS (2)
  - CONDITION AGGRAVATED [None]
  - RECTAL CANCER METASTATIC [None]
